FAERS Safety Report 24147584 (Version 2)
Quarter: 2025Q1

REPORT INFORMATION
  Report Type: Report from Study
  Country: DE (occurrence: DE)
  Receive Date: 20240729
  Receipt Date: 20250123
  Transmission Date: 20250409
  Serious: Yes (Hospitalization)
  Sender: ABBVIE
  Company Number: DE-ABBVIE-5855556

PATIENT
  Age: 72 Year
  Sex: Female

DRUGS (1)
  1. RINVOQ [Suspect]
     Active Substance: UPADACITINIB
     Indication: Rheumatoid arthritis
     Route: 048
     Dates: end: 20240620

REACTIONS (2)
  - Cervix carcinoma [Not Recovered/Not Resolved]
  - Clear cell endometrial carcinoma [Not Recovered/Not Resolved]

NARRATIVE: CASE EVENT DATE: 20231201
